FAERS Safety Report 5837283-7 (Version None)
Quarter: 2008Q3

REPORT INFORMATION
  Report Type: 
  Country: None (occurrence: None)
  Receive Date: 20080807
  Receipt Date: 20080728
  Transmission Date: 20090109
  Serious: Yes (Hospitalization)
  Sender: FDA-Public Use
  Company Number: US-ELI_LILLY_AND_COMPANY-US200808000272

PATIENT
  Age: 53 Year
  Sex: Male

DRUGS (6)
  1. BYETTA [Suspect]
     Dosage: 10 UG, UNKNOWN
     Route: 058
     Dates: end: 20080601
  2. LIPITOR [Concomitant]
     Dosage: 80 MG, UNK
  3. LEVEMIR [Concomitant]
     Dosage: UNK, UNKNOWN
     Route: 058
  4. METFORMIN HCL [Concomitant]
     Dosage: UNK, UNKNOWN
     Route: 065
  5. LASIX [Concomitant]
     Dosage: UNK, UNKNOWN
     Route: 065
  6. ZESTRIL [Concomitant]
     Dosage: UNK, UNKNOWN
     Route: 065
     Dates: end: 20080601

REACTIONS (1)
  - PANCREATITIS [None]
